FAERS Safety Report 9173816 (Version 3)
Quarter: 2013Q2

REPORT INFORMATION
  Report Type: Spontaneous
  Country: US (occurrence: None)
  Receive Date: 20130318
  Receipt Date: 20130410
  Transmission Date: 20140414
  Serious: Yes (Other)
  Sender: FDA-Public Use
  Company Number: JPI-P-030463

PATIENT
  Age: 59 Year
  Sex: Female
  Weight: 72.58 kg

DRUGS (7)
  1. XYREM [Suspect]
     Indication: CATAPLEXY
     Dosage: 4.5 GM (2.25 GM, 2 IN 1 D), ORAL
     Dates: start: 20130227, end: 2013
  2. SITAGLIPTIN PHOSPHATE [Concomitant]
  3. HYDROXYCHLOROQUINE [Concomitant]
  4. PRENATAL VITAMINS [Concomitant]
  5. VITAMIN B COMPLEX [Concomitant]
  6. CALCIUM PLUS D [Concomitant]
  7. FISH OIL [Concomitant]

REACTIONS (10)
  - Feeling abnormal [None]
  - Abdominal pain upper [None]
  - Insomnia [None]
  - Diarrhoea [None]
  - Pyrexia [None]
  - Rheumatoid arthritis [None]
  - Fatigue [None]
  - Paraesthesia [None]
  - Hangover [None]
  - Blood glucose increased [None]
